FAERS Safety Report 5511277-3 (Version None)
Quarter: 2007Q4

REPORT INFORMATION
  Report Type: 
  Country: None (occurrence: None)
  Receive Date: 20071109
  Receipt Date: 20071031
  Transmission Date: 20080405
  Serious: Yes (Other)
  Sender: FDA-Public Use
  Company Number: CN-WYE-H00965307

PATIENT
  Age: 65 Year
  Sex: Male

DRUGS (1)
  1. AMIODARONE HCL [Suspect]
     Indication: ATRIAL FIBRILLATION
     Dosage: 200 TO 400 MG DAILY
     Route: 065

REACTIONS (2)
  - HEPATOTOXICITY [None]
  - MALIGNANT NEOPLASM OF AMPULLA OF VATER [None]
